FAERS Safety Report 26107210 (Version 1)
Quarter: 2025Q4

REPORT INFORMATION
  Report Type: Spontaneous
  Country: US (occurrence: None)
  Receive Date: 20251126
  Receipt Date: 20251126
  Transmission Date: 20260118
  Serious: Yes (Disabling)
  Sender: FDA-CTU
  Company Number: None

PATIENT
  Age: 35 Year
  Sex: Female
  Weight: 59.85 kg

DRUGS (1)
  1. BOTOX [Suspect]
     Active Substance: ONABOTULINUMTOXINA
     Indication: Facial cosmetic procedure
     Dates: start: 20251010

REACTIONS (21)
  - Headache [None]
  - Myalgia [None]
  - Asthenia [None]
  - Fatigue [None]
  - Neck pain [None]
  - Musculoskeletal stiffness [None]
  - Dizziness [None]
  - Flushing [None]
  - Malaise [None]
  - Tinnitus [None]
  - Visual impairment [None]
  - Heart rate increased [None]
  - Decreased appetite [None]
  - Pain in jaw [None]
  - Mastication disorder [None]
  - Autoimmune disorder [None]
  - Quality of life decreased [None]
  - Muscular weakness [None]
  - Hypopnoea [None]
  - Speech disorder [None]
  - Muscular weakness [None]

NARRATIVE: CASE EVENT DATE: 20251010
